FAERS Safety Report 8777976 (Version 1)
Quarter: 2012Q4

REPORT INFORMATION
  Report Type: 
  Country: US (occurrence: US)
  Receive Date: 20120911
  Receipt Date: 20120911
  Transmission Date: 20130627
  Serious: No
  Sender: FDA-Public Use
  Company Number: US-PFIZER INC-2012220016

PATIENT
  Age: 32 Year
  Sex: Female

DRUGS (3)
  1. SPIRONOLACTONE [Suspect]
     Indication: ACNE
     Dosage: 100 mg, UNK
  2. IMITREX [Suspect]
     Dosage: UNK
  3. FIORICET [Suspect]
     Dosage: UNK

REACTIONS (2)
  - Off label use [Unknown]
  - Haemorrhoids [Unknown]
